FAERS Safety Report 12594822 (Version 1)
Quarter: 2016Q3

REPORT INFORMATION
  Report Type: Spontaneous
  Country: US (occurrence: US)
  Receive Date: 20160726
  Receipt Date: 20160726
  Transmission Date: 20161109
  Serious: No
  Sender: FDA-Public Use
  Company Number: US-UNITED THERAPEUTICS-UNT-2016-004192

PATIENT
  Age: 69 Year
  Sex: Female
  Weight: 48.89 kg

DRUGS (2)
  1. TYVASO [Suspect]
     Active Substance: TREPROSTINIL
     Dosage: UNK
  2. TYVASO [Suspect]
     Active Substance: TREPROSTINIL
     Indication: PULMONARY ARTERIAL HYPERTENSION
     Dosage: 18-72 MICROGRAMS, QID
     Dates: start: 20160303

REACTIONS (8)
  - Product use issue [Unknown]
  - Rhinorrhoea [Unknown]
  - Seasonal allergy [Unknown]
  - Sinusitis [Unknown]
  - Nasal congestion [Unknown]
  - Dysphagia [Unknown]
  - Palpitations [Unknown]
  - Cough [Unknown]

NARRATIVE: CASE EVENT DATE: 201603
